APPROVED DRUG PRODUCT: SODIUM BICARBONATE
Active Ingredient: SODIUM BICARBONATE
Strength: 44.6MEQ/50ML (0.9MEQ/ML)
Dosage Form/Route: SOLUTION;INTRAVENOUS
Application: A077394 | Product #001
Applicant: HOSPIRA INC
Approved: Nov 9, 2005 | RLD: No | RS: No | Type: DISCN